FAERS Safety Report 13392437 (Version 1)
Quarter: 2017Q1

REPORT INFORMATION
  Report Type: Spontaneous
  Country: US (occurrence: US)
  Receive Date: 20170331
  Receipt Date: 20170331
  Transmission Date: 20170429
  Serious: Yes (Hospitalization)
  Sender: FDA-Public Use
  Company Number: US-ELI_LILLY_AND_COMPANY-US201608005455

PATIENT
  Age: 53 Year
  Sex: Female

DRUGS (1)
  1. CYMBALTA [Suspect]
     Active Substance: DULOXETINE HYDROCHLORIDE
     Indication: DEPRESSION
     Dosage: 60 MG, QD
     Route: 048
     Dates: start: 2005

REACTIONS (19)
  - Suicidal ideation [Unknown]
  - Confusional state [Unknown]
  - Drug withdrawal syndrome [Unknown]
  - Dysphoria [Unknown]
  - Mental disorder [Unknown]
  - Rash [Unknown]
  - Lethargy [Unknown]
  - Anxiety [Unknown]
  - Irritability [Unknown]
  - Headache [Unknown]
  - Agitation [Unknown]
  - Affect lability [Unknown]
  - Intentional product misuse [Unknown]
  - Diarrhoea [Unknown]
  - Insomnia [Unknown]
  - Photophobia [Unknown]
  - Paraesthesia [Unknown]
  - Paranoia [Unknown]
  - Suicide attempt [Unknown]

NARRATIVE: CASE EVENT DATE: 20120101
